FAERS Safety Report 17377382 (Version 3)
Quarter: 2025Q3

REPORT INFORMATION
  Report Type: Spontaneous
  Country: US (occurrence: US)
  Receive Date: 20200206
  Receipt Date: 20250702
  Transmission Date: 20251021
  Serious: No
  Sender: PFIZER
  Company Number: US-PFIZER INC-2020052508

PATIENT
  Age: 77 Year
  Sex: Female

DRUGS (9)
  1. FENTANYL CITRATE [Suspect]
     Active Substance: FENTANYL CITRATE
  2. SERTRALINE HYDROCHLORIDE [Suspect]
     Active Substance: SERTRALINE HYDROCHLORIDE
  3. AUGMENTIN [Suspect]
     Active Substance: AMOXICILLIN\CLAVULANATE POTASSIUM
  4. DARVOCET [Suspect]
     Active Substance: ACETAMINOPHEN\PROPOXYPHENE HYDROCHLORIDE
  5. IODINE [Suspect]
     Active Substance: IODINE
  6. LOSARTAN POTASSIUM [Suspect]
     Active Substance: LOSARTAN POTASSIUM
  7. SCOPACE [Suspect]
     Active Substance: SCOPOLAMINE HYDROBROMIDE
  8. JARDIANCE [Suspect]
     Active Substance: EMPAGLIFLOZIN
  9. PROPOXYPHENE [Suspect]
     Active Substance: PROPOXYPHENE

REACTIONS (1)
  - Drug hypersensitivity [Unknown]
